FAERS Safety Report 9924373 (Version 2)
Quarter: 2014Q1

REPORT INFORMATION
  Report Type: Spontaneous
  Country: US (occurrence: US)
  Receive Date: 20140226
  Receipt Date: 20140331
  Transmission Date: 20141002
  Serious: Yes (Hospitalization, Other)
  Sender: FDA-Public Use
  Company Number: US-AMGEN-USASP2014012432

PATIENT
  Age: 58 Year
  Sex: Female
  Weight: 64.4 kg

DRUGS (2)
  1. XGEVA [Suspect]
     Indication: METASTASES TO BONE
     Dosage: 120 MG, QMO
     Route: 058
     Dates: start: 20120401, end: 20131220
  2. AVASTIN                            /00848101/ [Concomitant]
     Indication: SMALL CELL LUNG CANCER METASTATIC
     Dosage: 1050 MG, UNK
     Route: 042
     Dates: start: 20120418, end: 20131220

REACTIONS (3)
  - Cellulitis [Recovered/Resolved]
  - Subcutaneous abscess [Recovered/Resolved]
  - Sinusitis [Unknown]
